FAERS Safety Report 10404613 (Version 3)
Quarter: 2015Q1

REPORT INFORMATION
  Report Type: Spontaneous
  Country: US (occurrence: None)
  Receive Date: 20140530
  Receipt Date: 20150121
  Transmission Date: 20150720
  Serious: Yes (Hospitalization)
  Sender: FDA-Public Use
  Company Number: 1713747-2014-99974

PATIENT
  Sex: Male
  Weight: 66 kg

DRUGS (20)
  1. CARAFATE [Concomitant]
     Active Substance: SUCRALFATE
  2. DUONEB [Concomitant]
     Active Substance: ALBUTEROL SULFATE\IPRATROPIUM BROMIDE
  3. ATIVAN [Concomitant]
     Active Substance: LORAZEPAM
  4. SODIUM BICARBONATE. [Concomitant]
     Active Substance: SODIUM BICARBONATE
  5. PROVENTIL HFA [Concomitant]
     Active Substance: ALBUTEROL SULFATE
  6. VITAMIN D3 [Concomitant]
     Active Substance: CHOLECALCIFEROL
  7. DELFLEX [Suspect]
     Active Substance: CALCIUM CHLORIDE\DEXTROSE MONOHYDRATE\MAGNESIUM CHLORIDE\SODIUM CHLORIDE\SODIUM LACTATE
     Indication: CHRONIC KIDNEY DISEASE
     Route: 033
  8. DELFLEX [Suspect]
     Active Substance: CALCIUM CHLORIDE\DEXTROSE MONOHYDRATE\MAGNESIUM CHLORIDE\SODIUM CHLORIDE\SODIUM LACTATE
     Indication: PERITONEAL DIALYSIS
     Route: 033
  9. PROTONIX DR [Concomitant]
  10. ALTACE [Concomitant]
     Active Substance: RAMIPRIL
  11. ROCALTROL [Concomitant]
     Active Substance: CALCITRIOL
  12. CELEXA [Concomitant]
     Active Substance: CITALOPRAM HYDROBROMIDE
  13. LONITEN [Concomitant]
     Active Substance: MINOXIDIL
  14. ECOTRIN [Concomitant]
     Active Substance: ASPIRIN
  15. PROCRIT [Concomitant]
     Active Substance: ERYTHROPOIETIN
  16. MAGONATE [Concomitant]
     Active Substance: MAGNESIUM CARBONATE
  17. TOPROL XL [Concomitant]
     Active Substance: METOPROLOL SUCCINATE
  18. NEPHROVITE [Concomitant]
  19. CARDURA [Concomitant]
     Active Substance: DOXAZOSIN MESYLATE
  20. LIBERTY CYCLER AND TUBING [Concomitant]

REACTIONS (10)
  - Nausea [None]
  - Vomiting [None]
  - Cyanosis [None]
  - Diarrhoea [None]
  - Pain in extremity [None]
  - Hypokalaemia [None]
  - Feeling cold [None]
  - Hypotension [None]
  - Dehydration [None]
  - Pulse absent [None]

NARRATIVE: CASE EVENT DATE: 20140425
